FAERS Safety Report 9991538 (Version 1)
Quarter: 2014Q1

REPORT INFORMATION
  Report Type: Spontaneous
  Country: IT (occurrence: IT)
  Receive Date: 20140310
  Receipt Date: 20140310
  Transmission Date: 20141002
  Serious: Yes (Hospitalization)
  Sender: FDA-Public Use
  Company Number: IT-MYLANLABS-2014S1004441

PATIENT
  Age: 20 Year
  Sex: Male

DRUGS (5)
  1. LOPERAMIDE [Suspect]
     Indication: DIARRHOEA
     Dosage: 3 X 2MG TABLETS OVER 6H
     Route: 048
  2. LOPERAMIDE [Suspect]
     Indication: OVERDOSE
     Dosage: 3 X 2MG TABLETS OVER 6H
     Route: 048
  3. LOPERAMIDE [Suspect]
     Indication: DIARRHOEA
     Dosage: 9 X 2MG TABLETS OVER 30H
     Route: 048
  4. LOPERAMIDE [Suspect]
     Indication: OVERDOSE
     Dosage: 9 X 2MG TABLETS OVER 30H
     Route: 048
  5. OLANZAPINE [Suspect]

REACTIONS (8)
  - Overdose [Recovered/Resolved]
  - Catatonia [Recovered/Resolved]
  - Delirium [Unknown]
  - Constipation [Unknown]
  - Urinary retention [Unknown]
  - Hyperhidrosis [Unknown]
  - Urinary hesitation [Unknown]
  - Condition aggravated [Unknown]
